FAERS Safety Report 14101486 (Version 3)
Quarter: 2019Q2

REPORT INFORMATION
  Report Type: Spontaneous
  Country: US (occurrence: US)
  Receive Date: 20171018
  Receipt Date: 20190409
  Transmission Date: 20190711
  Serious: No
  Sender: FDA-Public Use
  Company Number: US-PFIZER INC-2017447508

PATIENT
  Age: 61 Year
  Sex: Female
  Weight: 77 kg

DRUGS (12)
  1. IBRANCE [Suspect]
     Active Substance: PALBOCICLIB
     Indication: BREAST CANCER METASTATIC
     Dosage: 125 MG, CYCLIC (ONCE DAILY FOR 3 WEEKS AND THEN OFF 1 WEEK)
     Route: 048
     Dates: start: 201707
  2. LETROZOLE. [Concomitant]
     Active Substance: LETROZOLE
     Dosage: 2.5 MG, 1X/DAY
     Route: 048
     Dates: start: 201706
  3. NORCO [Concomitant]
     Active Substance: ACETAMINOPHEN\HYDROCODONE BITARTRATE
     Indication: PAIN
     Dosage: UNK, AS NEEDED (EVERY 6 (SIX) HOURS AS NEEDED )
     Route: 048
  4. CALTRATE 600+D [Concomitant]
     Dosage: 1 DF , DAILY (CALCIUM CARBONATE 600 MG/VITAMIN D 400 UNIT)
     Route: 048
  5. DIPHENHYDRAMINE/LIDOCAINE/NYSTATIN [Concomitant]
     Dosage: 10 ML, 4X/DAY (EVERY 6 (SIX) HOURS)
  6. IBRANCE [Suspect]
     Active Substance: PALBOCICLIB
     Dosage: 125 MG, CYCLIC (DAILY, FOR 21 DAYS FOLLOWED BY A 7 DAY REST PERIOD)
     Route: 048
     Dates: start: 20180515
  7. CELEXA [Concomitant]
     Active Substance: CITALOPRAM HYDROBROMIDE
     Dosage: 20 MG, DAILY (TAKE 1 TABLET BY MOUTH DAILY)
     Route: 048
  8. ZOFRAN [Concomitant]
     Active Substance: ONDANSETRON HYDROCHLORIDE
     Indication: NAUSEA
     Dosage: 4 MG, AS NEEDED (EVERY EIGHT HOURS)
     Route: 048
  9. XARELTO [Concomitant]
     Active Substance: RIVAROXABAN
     Indication: ANTICOAGULANT THERAPY
     Dosage: 20 MG, 1X/DAY
     Route: 048
  10. BENADRYL [Concomitant]
     Active Substance: DIPHENHYDRAMINE HYDROCHLORIDE
     Dosage: 50 MG, UNK (TAKE 2 CAPSULES BY MOUTH AS DIRECTED FOR 1 DOSE)
     Route: 048
  11. ROSUVASTATIN CALCIUM. [Concomitant]
     Active Substance: ROSUVASTATIN CALCIUM
     Indication: BLOOD CHOLESTEROL INCREASED
     Dosage: 10 MG, 1X/DAY
     Route: 048
     Dates: start: 201708
  12. RITALIN [Concomitant]
     Active Substance: METHYLPHENIDATE HYDROCHLORIDE
     Indication: FATIGUE
     Dosage: 10 MG, AS NEEDED (2  TIMES DAILY) (BEFORE BREAKFAST AND BEFORE LUNCH)
     Route: 048

REACTIONS (2)
  - Memory impairment [Unknown]
  - Fatigue [Unknown]
